FAERS Safety Report 6316897-4 (Version None)
Quarter: 2009Q3

REPORT INFORMATION
  Report Type: 
  Country: None (occurrence: None)
  Receive Date: 20090820
  Receipt Date: 20090812
  Transmission Date: 20100115
  Serious: Yes (Hospitalization)
  Sender: FDA-Public Use
  Company Number: US-ELI_LILLY_AND_COMPANY-US200908002601

PATIENT
  Sex: Male
  Weight: 102.95 kg

DRUGS (7)
  1. BYETTA [Suspect]
     Indication: TYPE 2 DIABETES MELLITUS
     Dosage: 5 UG, 2/D
     Route: 058
     Dates: start: 20080101, end: 20080101
  2. BYETTA [Suspect]
     Dosage: 10 UG, 2/D
     Route: 058
     Dates: start: 20080101, end: 20090807
  3. BYETTA [Suspect]
     Dosage: 10 UG, 2/D
     Route: 058
     Dates: start: 20090811
  4. GLUCOVANCE [Concomitant]
     Dosage: UNK, 2/D
  5. ALTACE [Concomitant]
     Dosage: UNK, DAILY (1/D)
  6. WELCHOL [Concomitant]
     Dosage: UNK, DAILY (1/D)
  7. NIASPAN [Concomitant]
     Dosage: UNK, DAILY (1/D)

REACTIONS (4)
  - DRUG DOSE OMISSION [None]
  - HEPATIC ENZYME ABNORMAL [None]
  - HEPATIC STEATOSIS [None]
  - PANCREATIC CYST [None]
